FAERS Safety Report 12665870 (Version 1)
Quarter: 2016Q3

REPORT INFORMATION
  Report Type: Spontaneous
  Country: US (occurrence: US)
  Receive Date: 20160818
  Receipt Date: 20160818
  Transmission Date: 20161109
  Serious: Yes (Death, Other)
  Sender: FDA-Public Use
  Company Number: US-BION-20160362

PATIENT
  Age: 52 Year
  Sex: Female

DRUGS (7)
  1. DIPHENHYDRAMINE. [Concomitant]
     Active Substance: DIPHENHYDRAMINE
  2. CHLORPHENIRAMINE. [Concomitant]
     Active Substance: CHLORPHENIRAMINE
  3. MEPROBAMATE. [Concomitant]
     Active Substance: MEPROBAMATE
  4. QUETIAPINE. [Concomitant]
     Active Substance: QUETIAPINE
  5. CARISOPRODOL. [Concomitant]
     Active Substance: CARISOPRODOL
  6. ACETAMINOPHEN. [Concomitant]
     Active Substance: ACETAMINOPHEN
  7. LOPRAMIDE HCL CAPSULES [Suspect]
     Active Substance: LOPERAMIDE HYDROCHLORIDE
     Route: 048

REACTIONS (2)
  - Unresponsive to stimuli [None]
  - Drug abuse [Fatal]
